FAERS Safety Report 8852253 (Version 1)
Quarter: 2012Q4

REPORT INFORMATION
  Report Type: 
  Country: US (occurrence: US)
  Receive Date: 20121022
  Receipt Date: 20121022
  Transmission Date: 20130627
  Serious: No
  Sender: FDA-Public Use
  Company Number: US-MYLANLABS-2012S1003808

PATIENT
  Age: 67 Year
  Sex: Female

DRUGS (4)
  1. CARVEDILOL [Suspect]
     Indication: BLOOD PRESSURE INCREASED
     Route: 048
     Dates: start: 20111219, end: 20120215
  2. FISH OIL [Concomitant]
     Route: 048
  3. VITAMIN D [Concomitant]
     Route: 048
  4. FLAX SEED OIL [Concomitant]
     Route: 048

REACTIONS (5)
  - Heart rate increased [Not Recovered/Not Resolved]
  - Burning sensation [Not Recovered/Not Resolved]
  - Agitation [Not Recovered/Not Resolved]
  - Hyperhidrosis [Not Recovered/Not Resolved]
  - Joint swelling [Not Recovered/Not Resolved]
